APPROVED DRUG PRODUCT: ALVIMOPAN
Active Ingredient: ALVIMOPAN
Strength: 12MG
Dosage Form/Route: CAPSULE;ORAL
Application: A216843 | Product #001 | TE Code: AB
Applicant: PH HEALTH LTD
Approved: Jan 24, 2023 | RLD: No | RS: No | Type: RX